FAERS Safety Report 9292394 (Version 3)
Quarter: 2014Q1

REPORT INFORMATION
  Report Type: Spontaneous
  Country: AR (occurrence: AR)
  Receive Date: 20130516
  Receipt Date: 20140121
  Transmission Date: 20141002
  Serious: Yes (Hospitalization, Other)
  Sender: FDA-Public Use
  Company Number: AR-PFIZER INC-2013149377

PATIENT
  Age: 61 Year
  Sex: Male

DRUGS (6)
  1. RAPAMUNE [Suspect]
     Indication: RENAL TRANSPLANT
     Dosage: 2 MG, 1X/DAY
     Dates: start: 20081201, end: 201304
  2. LOTRIAL [Concomitant]
     Dosage: UNK
  3. AMLODIPINE [Concomitant]
     Dosage: UNK
  4. CALCIUM [Concomitant]
     Dosage: UNK
  5. LOSARTAN [Concomitant]
     Dosage: UNK
  6. ULCOZOL [Concomitant]
     Dosage: UNK

REACTIONS (4)
  - Kidney transplant rejection [Recovering/Resolving]
  - Arterial occlusive disease [Not Recovered/Not Resolved]
  - Fatigue [Recovering/Resolving]
  - Hypotension [Recovering/Resolving]
